FAERS Safety Report 9027084 (Version 2)
Quarter: 2013Q2

REPORT INFORMATION
  Report Type: Spontaneous
  Country: US (occurrence: US)
  Receive Date: 20130123
  Receipt Date: 20130408
  Transmission Date: 20140414
  Serious: Yes (Other)
  Sender: FDA-Public Use
  Company Number: US-SANOFI-AVENTIS-2013SA002520

PATIENT
  Age: 76 Year
  Sex: Female
  Weight: 61.23 kg

DRUGS (10)
  1. MULTAQ [Suspect]
     Indication: ATRIAL FIBRILLATION
     Route: 048
     Dates: start: 20120925, end: 20121218
  2. ZOLOFT [Concomitant]
     Indication: DEPRESSION
  3. VALIUM [Concomitant]
     Indication: NERVOUS SYSTEM DISORDER
  4. HYDROCODONE [Concomitant]
     Indication: PAIN
     Dosage: 5-500 2 TO 3/DAY
  5. XARELTO [Concomitant]
     Indication: ANTICOAGULANT THERAPY
     Dates: start: 20120925
  6. LEVOTHYROXINE [Concomitant]
     Indication: THYROID DISORDER
  7. DONEPEZIL [Concomitant]
     Indication: MEMORY IMPAIRMENT
  8. MECLIZINE [Concomitant]
     Indication: GAIT DISTURBANCE
     Dosage: 1/2 3XDAY
  9. IBUPROFEN [Concomitant]
     Indication: ARTHRITIS
     Dosage: 6-8/DAY
  10. CALTRATE [Concomitant]
     Dosage: 2-3/DAY

REACTIONS (7)
  - Diarrhoea [Recovering/Resolving]
  - Abdominal discomfort [Recovering/Resolving]
  - Proctalgia [Recovering/Resolving]
  - Skin irritation [Recovering/Resolving]
  - Asthenia [Recovering/Resolving]
  - Malaise [Recovering/Resolving]
  - Suicidal ideation [Recovering/Resolving]
